FAERS Safety Report 17805459 (Version 1)
Quarter: 2020Q2

REPORT INFORMATION
  Report Type: Spontaneous
  Country: US (occurrence: US)
  Receive Date: 20200519
  Receipt Date: 20200519
  Transmission Date: 20200714
  Serious: Yes (Other)
  Sender: FDA-Public Use
  Company Number: US-FRESENIUS KABI-FK202004922

PATIENT
  Sex: Female

DRUGS (1)
  1. OXYTOCIN INJECTION (MANUFACTURER UNKNOWN) [Suspect]
     Active Substance: OXYTOCIN
     Indication: INDUCED LABOUR
     Dosage: UNKNOWN
     Route: 065

REACTIONS (3)
  - Hyponatraemia [Unknown]
  - Therapeutic product effect prolonged [Unknown]
  - Exposure during pregnancy [Unknown]
